FAERS Safety Report 7368719-0 (Version None)
Quarter: 2011Q1

REPORT INFORMATION
  Report Type: 
  Country: None (occurrence: None)
  Receive Date: 20110304
  Receipt Date: 20110218
  Transmission Date: 20110831
  Serious: Yes (Other)
  Sender: FDA-Public Use
  Company Number: 2011SP007948

PATIENT
  Age: 43 Year
  Sex: Female

DRUGS (4)
  1. TEMODAR [Suspect]
     Indication: MALIGNANT MELANOMA
     Dosage: 800 MG, TID, PO
     Route: 048
     Dates: start: 20101001, end: 20101201
  2. ATIVAN [Concomitant]
  3. PROZAC [Concomitant]
  4. ZOFRAN [Suspect]
     Indication: PRODUCT USED FOR UNKNOWN INDICATION

REACTIONS (8)
  - MALAISE [None]
  - RESTLESS LEGS SYNDROME [None]
  - ABDOMINAL DISCOMFORT [None]
  - MIGRAINE [None]
  - BLOOD IRON DECREASED [None]
  - VOMITING [None]
  - DEHYDRATION [None]
  - CONSTIPATION [None]
